FAERS Safety Report 6299773-5 (Version None)
Quarter: 2009Q3

REPORT INFORMATION
  Report Type: 
  Country: None (occurrence: None)
  Receive Date: 20090806
  Receipt Date: 20090730
  Transmission Date: 20100115
  Serious: Yes (Death)
  Sender: FDA-Public Use
  Company Number: JP-BAYER-200912376BYL

PATIENT
  Age: 84 Year
  Sex: Male
  Weight: 53 kg

DRUGS (8)
  1. NEXAVAR [Suspect]
     Indication: RENAL CELL CARCINOMA STAGE I
     Dosage: TOTAL DAILY DOSE: 800 MG  UNIT DOSE: 200 MG
     Route: 048
     Dates: start: 20080930, end: 20081014
  2. NEXAVAR [Suspect]
     Dosage: UNIT DOSE: 200 MG
     Route: 048
     Dates: start: 20090616, end: 20090709
  3. ADONA [Concomitant]
     Route: 048
     Dates: start: 20080930
  4. ADALAT CC [Concomitant]
     Route: 048
     Dates: start: 20080930
  5. ADALAT CC [Concomitant]
     Route: 048
     Dates: start: 20090707, end: 20090709
  6. MAGMITT [Concomitant]
     Route: 048
     Dates: start: 20090421, end: 20090709
  7. ARGAMATE [Concomitant]
     Route: 048
     Dates: start: 20090421, end: 20090709
  8. PURSENNID [Concomitant]
     Route: 048
     Dates: start: 20090421

REACTIONS (5)
  - AORTIC DISSECTION [None]
  - HEPATIC FUNCTION ABNORMAL [None]
  - HYPERAMYLASAEMIA [None]
  - PALMAR-PLANTAR ERYTHRODYSAESTHESIA SYNDROME [None]
  - RASH [None]
